FAERS Safety Report 14381835 (Version 1)
Quarter: 2018Q1

REPORT INFORMATION
  Report Type: Spontaneous
  Country: US (occurrence: US)
  Receive Date: 20180111
  Receipt Date: 20180111
  Transmission Date: 20180509
  Serious: Yes (Other)
  Sender: FDA-Public Use
  Company Number: None

PATIENT
  Age: 59 Year
  Sex: Male
  Weight: 90.9 kg

DRUGS (1)
  1. AMOXICILLIN. [Suspect]
     Active Substance: AMOXICILLIN
     Indication: STREPTOCOCCUS TEST POSITIVE
     Route: 048
     Dates: start: 20171226, end: 20171229

REACTIONS (1)
  - Dialysis [None]

NARRATIVE: CASE EVENT DATE: 20171229
